FAERS Safety Report 20102749 (Version 3)
Quarter: 2022Q1

REPORT INFORMATION
  Report Type: Report from Study
  Country: CH (occurrence: BR)
  Receive Date: 20211123
  Receipt Date: 20220302
  Transmission Date: 20220423
  Serious: Yes (Hospitalization, Other)
  Sender: FDA-Public Use
  Company Number: CH-GLAXOSMITHKLINE-BR2021EME240067

PATIENT
  Age: 45 Year
  Sex: Female

DRUGS (1)
  1. TAFENOQUINE [Suspect]
     Active Substance: TAFENOQUINE
     Indication: Plasmodium vivax infection

REACTIONS (3)
  - Contraindicated product administered [Unknown]
  - Chromaturia [Unknown]
  - Rhabdomyolysis [Recovered/Resolved]

NARRATIVE: CASE EVENT DATE: 20210929
